FAERS Safety Report 8968012 (Version 1)
Quarter: 2012Q4

REPORT INFORMATION
  Report Type: Spontaneous
  Country: US (occurrence: None)
  Receive Date: 20121214
  Receipt Date: 20121214
  Transmission Date: 20130627
  Serious: No
  Sender: FDA-Public Use
  Company Number: None

PATIENT
  Sex: Female

DRUGS (1)
  1. FENTANYL [Suspect]
     Indication: PAIN
     Dosage: 1 patch Q72hrs transdermal
     Route: 062
     Dates: start: 20121121, end: 20121206

REACTIONS (3)
  - Skin irritation [None]
  - Skin disorder [None]
  - Product substitution issue [None]
